FAERS Safety Report 17466565 (Version 1)
Quarter: 2020Q1

REPORT INFORMATION
  Report Type: Spontaneous
  Country: CH (occurrence: CH)
  Receive Date: 20200227
  Receipt Date: 20200227
  Transmission Date: 20200409
  Serious: Yes (Other)
  Sender: FDA-Public Use
  Company Number: CH-AMGEN-CHESP2020030901

PATIENT
  Age: 52 Year
  Sex: Female

DRUGS (5)
  1. CARBOPLATINUM [Concomitant]
     Active Substance: CARBOPLATIN
     Indication: BONE CANCER METASTATIC
  2. XGEVA [Suspect]
     Active Substance: DENOSUMAB
     Indication: BONE CANCER METASTATIC
     Dosage: UNK
     Route: 065
  3. PACLITAXEL. [Concomitant]
     Active Substance: PACLITAXEL
     Indication: ENDOMETRIAL CANCER METASTATIC
     Dosage: UNK, QWK
  4. PACLITAXEL. [Concomitant]
     Active Substance: PACLITAXEL
     Indication: BONE CANCER METASTATIC
  5. CARBOPLATINUM [Concomitant]
     Active Substance: CARBOPLATIN
     Indication: ENDOMETRIAL CANCER METASTATIC
     Dosage: UNK, QWK

REACTIONS (2)
  - Endometrial cancer metastatic [Unknown]
  - Therapeutic product effect incomplete [Unknown]
